FAERS Safety Report 13345920 (Version 1)
Quarter: 2017Q1

REPORT INFORMATION
  Report Type: Report from Study
  Country: US (occurrence: US)
  Receive Date: 20170317
  Receipt Date: 20170317
  Transmission Date: 20170428
  Serious: Yes (Death, Hospitalization, Other)
  Sender: FDA-Public Use
  Company Number: US-ASTELLAS-2017US004433

PATIENT
  Age: 70 Year
  Sex: Male

DRUGS (1)
  1. ERLOTINIB [Suspect]
     Active Substance: ERLOTINIB
     Indication: RENAL CANCER
     Route: 065

REACTIONS (9)
  - Anaemia [Unknown]
  - Acute kidney injury [Unknown]
  - Pulmonary oedema [Recovering/Resolving]
  - Pneumonia [Unknown]
  - Pulmonary alveolar haemorrhage [Fatal]
  - Acute respiratory failure [Fatal]
  - Renal cyst [Unknown]
  - Renal hypertrophy [Unknown]
  - Acute myocardial infarction [Unknown]

NARRATIVE: CASE EVENT DATE: 20170118
